FAERS Safety Report 7315515-6 (Version None)
Quarter: 2011Q1

REPORT INFORMATION
  Report Type: 
  Country: None (occurrence: None)
  Receive Date: 20110225
  Receipt Date: 20110214
  Transmission Date: 20110831
  Serious: Yes (Hospitalization, Other)
  Sender: FDA-Public Use
  Company Number: US-ELI_LILLY_AND_COMPANY-US201102005312

PATIENT
  Sex: Male
  Weight: 108.84 kg

DRUGS (10)
  1. TOPROL-XL [Concomitant]
     Indication: HYPERTENSION
     Dosage: 25 MG, DAILY (1/D)
     Route: 048
  2. NIACIN [Concomitant]
     Indication: HYPERCHOLESTEROLAEMIA
     Dosage: 500 MG, DAILY (1/D)
     Route: 048
     Dates: start: 20100430
  3. ASA [Concomitant]
     Indication: ANTIPLATELET THERAPY
     Dosage: 325 MG, DAILY (1/D)
     Route: 048
     Dates: start: 20100429
  4. LISINOPRIL [Concomitant]
     Indication: HYPERTENSION
     Dosage: 10 MG, DAILY (1/D)
     Route: 048
  5. PRASUGREL HYDROCHLORIDE [Suspect]
     Dosage: 10 MG, DAILY (1/D)
  6. ASA [Concomitant]
     Dosage: 81 MG, DAILY (1/D)
     Dates: start: 20100428, end: 20100428
  7. PRASUGREL HYDROCHLORIDE [Suspect]
     Indication: ACUTE CORONARY SYNDROME
     Dosage: 60 MG, ONCE
     Dates: start: 20100429, end: 20100429
  8. PRAVASTATIN [Concomitant]
     Indication: HYPERCHOLESTEROLAEMIA
     Dosage: 20 MG, DAILY (1/D)
     Route: 048
  9. IMDUR [Concomitant]
     Indication: ANGINA PECTORIS
     Dosage: 30 MG, DAILY (1/D)
     Route: 048
     Dates: start: 20100428
  10. ASA [Concomitant]
     Dosage: 125 MG, DAILY (1/D)

REACTIONS (1)
  - ANGINA PECTORIS [None]
